FAERS Safety Report 16268873 (Version 3)
Quarter: 2019Q2

REPORT INFORMATION
  Report Type: Spontaneous
  Country: IT (occurrence: IT)
  Receive Date: 20190503
  Receipt Date: 20190529
  Transmission Date: 20190711
  Serious: Yes (Disabling)
  Sender: FDA-Public Use
  Company Number: IT-TEVA-2019-IT-1044056

PATIENT
  Age: 44 Year
  Sex: Male
  Weight: 88 kg

DRUGS (2)
  1. LEVOFLOXACIN. [Suspect]
     Active Substance: LEVOFLOXACIN
     Route: 002
     Dates: start: 20190315, end: 20190320
  2. LEVOFLOXACINA ZENTIVA [Suspect]
     Active Substance: LEVOFLOXACIN
     Route: 002
     Dates: start: 20190315, end: 20190320

REACTIONS (2)
  - Chest discomfort [Not Recovered/Not Resolved]
  - Paraesthesia [Not Recovered/Not Resolved]

NARRATIVE: CASE EVENT DATE: 20190323
